FAERS Safety Report 8815100 (Version 9)
Quarter: 2016Q2

REPORT INFORMATION
  Report Type: Report from Study
  Country: DE (occurrence: DE)
  Receive Date: 20120928
  Receipt Date: 20160519
  Transmission Date: 20160815
  Serious: Yes (Life-Threatening, Hospitalization, Other)
  Sender: FDA-Public Use
  Company Number: DE-JNJFOC-20120910808

PATIENT
  Age: 11 Year
  Sex: Male
  Weight: 27.5 kg

DRUGS (13)
  1. REMICADE [Suspect]
     Active Substance: INFLIXIMAB
     Indication: CROHN^S DISEASE
     Route: 042
     Dates: start: 20120419
  2. METHOTREXATE [Concomitant]
     Active Substance: METHOTREXATE
  3. PROBIOTICS [Concomitant]
     Active Substance: PROBIOTICS NOS
  4. POTASSIUM [Concomitant]
     Active Substance: POTASSIUM
  5. HUMIRA [Concomitant]
     Active Substance: ADALIMUMAB
     Route: 065
     Dates: start: 20120918
  6. VITAMIN D [Concomitant]
     Active Substance: CHOLECALCIFEROL
  7. NATRIUMHYDROGENCARBONATE [Concomitant]
  8. REMICADE [Suspect]
     Active Substance: INFLIXIMAB
     Indication: CROHN^S DISEASE
     Route: 042
     Dates: start: 20120918, end: 20120918
  9. MAGNESIUM [Concomitant]
     Active Substance: MAGNESIUM
  10. SELEN [Concomitant]
     Active Substance: SELENIUM
  11. 5-ASA [Concomitant]
     Active Substance: MESALAMINE
     Route: 048
  12. VITAMIN B12 [Concomitant]
     Active Substance: CYANOCOBALAMIN
  13. PANTOPRAZOLE [Concomitant]
     Active Substance: PANTOPRAZOLE SODIUM
     Route: 065

REACTIONS (5)
  - Intestinal haemorrhage [Not Recovered/Not Resolved]
  - Gastrostomy [Not Recovered/Not Resolved]
  - Crohn^s disease [Not Recovered/Not Resolved]
  - Anaphylactic reaction [Recovered/Resolved]
  - Infusion related reaction [Recovered/Resolved]

NARRATIVE: CASE EVENT DATE: 20120918
